FAERS Safety Report 6359556-4 (Version None)
Quarter: 2009Q3

REPORT INFORMATION
  Report Type: 
  Country: None (occurrence: None)
  Receive Date: 20090917
  Receipt Date: 20090911
  Transmission Date: 20100115
  Serious: Yes (Hospitalization)
  Sender: FDA-Public Use
  Company Number: US-ELI_LILLY_AND_COMPANY-US200909002923

PATIENT
  Sex: Female

DRUGS (2)
  1. BYETTA [Suspect]
     Indication: TYPE 2 DIABETES MELLITUS
     Dosage: 10 UG, 2/D
     Route: 058
  2. GLIPIZIDE [Concomitant]
     Dosage: UNK, 2/D

REACTIONS (3)
  - BLOOD GLUCOSE INCREASED [None]
  - CYSTITIS [None]
  - FATIGUE [None]
